FAERS Safety Report 7883132-5 (Version None)
Quarter: 2011Q4

REPORT INFORMATION
  Report Type: 
  Country: None (occurrence: None)
  Receive Date: 20111102
  Receipt Date: 20111025
  Transmission Date: 20120403
  Serious: No
  Sender: FDA-Public Use
  Company Number: US-BIOGENIDEC-2011BI040792

PATIENT
  Sex: Female

DRUGS (1)
  1. AVONEX [Suspect]
     Indication: MULTIPLE SCLEROSIS
     Route: 030
     Dates: start: 20040305

REACTIONS (5)
  - BRONCHITIS [None]
  - FUNGAL TEST POSITIVE [None]
  - ATELECTASIS [None]
  - LUNG DISORDER [None]
  - PARANASAL CYST [None]
